FAERS Safety Report 10270587 (Version 1)
Quarter: 2014Q2

REPORT INFORMATION
  Report Type: Spontaneous
  Country: US (occurrence: None)
  Receive Date: 20140626
  Receipt Date: 20140626
  Transmission Date: 20141212
  Serious: Yes (Other)
  Sender: FDA-Public Use
  Company Number: AEGR000539

PATIENT
  Age: 43 Year
  Sex: Male
  Weight: 75.3 kg

DRUGS (25)
  1. JUXTAPID (LOMITAPIDE) CAPSULE, 5 MG [Suspect]
     Indication: TYPE IIA HYPERLIPIDAEMIA
     Route: 048
     Dates: start: 20140505, end: 201405
  2. PLAVIX (CLOPIDOGREL BISULFATE) (CLOPIDOGREL BISULFATE) [Concomitant]
  3. MICARDIS (TELMISARTAN) [Concomitant]
  4. COREG (CARVEDILOL) [Concomitant]
  5. LIPITOR (ATORVASTATIN CALCIUM) [Concomitant]
  6. ASPIRIN (ACETYLSALICYLIC ACID) [Concomitant]
  7. TRICOR (FENOFIBRATE) [Concomitant]
  8. FLEXERIL (CYCLOBENZAPRINE HYDROCHLORIDE) [Concomitant]
  9. IMDUR (ISOSORBIDE MONONITRATE) [Concomitant]
  10. HYDROCHLOROTHIAZIDE (HYDROCHLOROTHIAZIDE) [Concomitant]
  11. XOPENEX HFA (LEVOSALBUTAMOL TARTRATE) [Concomitant]
  12. KLONOPIN (CLONAZEPAM) [Concomitant]
  13. PERCOCET (OXYCODONE HYDROCHLORIDE, PARACETAMOL) [Concomitant]
  14. FLAXSEED OIL (FLAXSEED OIL) [Concomitant]
  15. BIOTIN (BIOTIN) [Concomitant]
  16. FOLIC ACID (FOLIC ACID) [Concomitant]
  17. SELENIUM (SELENIUM) [Concomitant]
  18. MULTIVITAMIN (VITAMIN NOS) [Concomitant]
  19. VITAMIN D (COLECALCIFEROL) [Concomitant]
  20. NIACIN (NICOTINIC ACID) [Concomitant]
  21. PROTONIX (PANTOPRAZOLE SODIUM SESQUIHYDRATE) [Concomitant]
  22. OXYCONTIN (OXYCODONE HYDROCHLORIDE) [Concomitant]
  23. PROMETHAZINE (PROMETHAZINE) [Concomitant]
  24. CYMBALTA [Concomitant]
  25. FLOVENT HFA (FLUTICASONE PROPIONATE) [Concomitant]

REACTIONS (2)
  - Cardiovascular disorder [None]
  - Atrial fibrillation [None]
